FAERS Safety Report 10794998 (Version 3)
Quarter: 2015Q1

REPORT INFORMATION
  Report Type: Spontaneous
  Country: US (occurrence: US)
  Receive Date: 20150214
  Receipt Date: 20150318
  Transmission Date: 20150721
  Serious: No
  Sender: FDA-Public Use
  Company Number: US-GLAXOSMITHKLINE-A1067430A

PATIENT

DRUGS (1)
  1. ALLI [Suspect]
     Active Substance: ORLISTAT

REACTIONS (4)
  - Rectal discharge [Unknown]
  - Rash erythematous [Recovered/Resolved]
  - Treatment noncompliance [Unknown]
  - Rash [Recovered/Resolved]
